FAERS Safety Report 25636620 (Version 1)
Quarter: 2025Q3

REPORT INFORMATION
  Report Type: Report from Study
  Country: CA (occurrence: CA)
  Receive Date: 20250804
  Receipt Date: 20250804
  Transmission Date: 20251020
  Serious: Yes (Other)
  Sender: Alvotech
  Company Number: CA-JAMP PHARMA CORPORATION-2025-JAM-CA-01249

PATIENT
  Age: 59 Year
  Sex: Female
  Weight: 74.83 kg

DRUGS (1)
  1. SIMLANDI [Suspect]
     Active Substance: ADALIMUMAB-RYVK
     Indication: Psoriasis
     Dosage: 40 MG, Q2WEEKS
     Route: 058
     Dates: start: 20240710

REACTIONS (1)
  - Psoriatic arthropathy [Not Recovered/Not Resolved]
